FAERS Safety Report 8949695 (Version 3)
Quarter: 2013Q1

REPORT INFORMATION
  Report Type: Report from Study
  Country: DE (occurrence: DE)
  Receive Date: 20121206
  Receipt Date: 20130328
  Transmission Date: 20140127
  Serious: Yes (Other)
  Sender: FDA-Public Use
  Company Number: DE-ROCHE-1164224

PATIENT
  Sex: Female
  Weight: 72 kg

DRUGS (2)
  1. BEVACIZUMAB [Suspect]
     Indication: BREAST CANCER
     Route: 042
     Dates: start: 20120903, end: 20121105
  2. CAPECITABINE [Suspect]
     Indication: BREAST CANCER
     Route: 065

REACTIONS (1)
  - Cerebral infarction [Not Recovered/Not Resolved]
